FAERS Safety Report 6447313-X (Version None)
Quarter: 2009Q4

REPORT INFORMATION
  Report Type: 
  Country: None (occurrence: None)
  Receive Date: 20091116
  Receipt Date: 20091105
  Transmission Date: 20100525
  Serious: Yes (Hospitalization)
  Sender: FDA-Public Use
  Company Number: SPV1-2009-02199

PATIENT
  Age: 47 Year
  Sex: Male

DRUGS (7)
  1. ANAGRELIDE HCL [Suspect]
     Indication: ESSENTIAL THROMBOCYTHAEMIA
     Dosage: 2 MG, DAILY, ORAL
     Route: 048
     Dates: start: 20080221
  2. INEXIUM /01479303/(ESOMEPRAZOLE SODIUM) UNKNOWN [Suspect]
     Indication: VARICES OESOPHAGEAL
     Dosage: ORAL
     Route: 048
  3. AVLOCARDYL /00030002/(PROPRANOLOL HYDROCHLORIDE) UNKNOWN [Suspect]
     Indication: VARICES OESOPHAGEAL
     Dosage: 160 MG, 1X/DAY:QD, ORAL
     Route: 048
     Dates: start: 20030101
  4. DELURSAN(URSODEOXYCHOLIC ACID) UNKNOWN [Suspect]
     Indication: DRUG USE FOR UNKNOWN INDICATION
     Dosage: 250 MG, 1X/DAY:QD, ORAL
     Route: 048
     Dates: start: 20030101
  5. PREVISCAN /00789001/(FLUINDIONE) UNKNOWN [Suspect]
     Indication: ESSENTIAL THROMBOCYTHAEMIA
     Dosage: 15 MG, 1X/DAY:QD, ORAL
     Route: 048
     Dates: start: 20000101
  6. DAFALGAN /00020001/(PARACETAMOL) UNKNOWN [Suspect]
     Indication: DRUG USE FOR UNKNOWN INDICATION
     Dosage: ORAL
     Route: 048
  7. TARDYFERON /00023503/(FERROUS SULFATE) UNKNOWN [Suspect]
     Indication: DRUG USE FOR UNKNOWN INDICATION
     Dosage: 1 DF, 2X/DAY:BID, ORAL
     Route: 048
     Dates: start: 20000101

REACTIONS (9)
  - EPISTAXIS [None]
  - OESOPHAGEAL VARICES HAEMORRHAGE [None]
  - PLATELET COUNT INCREASED [None]
  - PORTAL HYPERTENSION [None]
  - PULMONARY EMBOLISM [None]
  - RECTAL HAEMORRHAGE [None]
  - SHUNT MALFUNCTION [None]
  - SPLENECTOMY [None]
  - TRANSIENT ISCHAEMIC ATTACK [None]
